FAERS Safety Report 6663383-8 (Version None)
Quarter: 2010Q2

REPORT INFORMATION
  Report Type: 
  Country: None (occurrence: None)
  Receive Date: 20100401
  Receipt Date: 20100324
  Transmission Date: 20101027
  Serious: Yes (Hospitalization)
  Sender: FDA-Public Use
  Company Number: FR-PFIZER INC-2010037423

PATIENT
  Age: 30 Year
  Sex: Female

DRUGS (14)
  1. VFEND [Suspect]
     Dosage: 200 MG, 2X/DAY
     Dates: start: 20091001, end: 20091101
  2. ELISOR [Suspect]
     Dosage: 10 MG, UNK
     Route: 048
     Dates: start: 20090903, end: 20091126
  3. CORTANCYL [Concomitant]
  4. CELLCEPT [Concomitant]
  5. PROGRAF [Concomitant]
  6. VALGANCICLOVIR [Concomitant]
  7. MERONEM [Concomitant]
  8. CIPROFLOXACIN HCL [Concomitant]
  9. NEXIUM [Concomitant]
  10. PARACETAMOL [Concomitant]
  11. IMOVANE [Concomitant]
  12. FANSIDAR [Concomitant]
  13. LEDERFOLIN [Concomitant]
  14. CREON [Concomitant]

REACTIONS (1)
  - CYTOLYTIC HEPATITIS [None]
